FAERS Safety Report 17477713 (Version 1)
Quarter: 2020Q1

REPORT INFORMATION
  Report Type: Report from Study
  Country: JP (occurrence: JP)
  Receive Date: 20200228
  Receipt Date: 20200228
  Transmission Date: 20200409
  Serious: Yes (Hospitalization)
  Sender: FDA-Public Use
  Company Number: PHHY2009JP073155

PATIENT
  Age: 37 Year
  Sex: Female
  Weight: 48 kg

DRUGS (20)
  1. GASTER [Concomitant]
     Active Substance: FAMOTIDINE
     Indication: DUODENAL ULCER
     Dosage: ?????
     Route: 048
     Dates: start: 20091126, end: 20091214
  2. LOPEMIN [Concomitant]
     Indication: DIARRHOEA
     Dosage: ?????
     Route: 048
     Dates: start: 20090806, end: 20090812
  3. PYDOXAL [Concomitant]
     Active Substance: PYRIDOXAL
     Indication: PROPHYLAXIS
     Dosage: ?????
     Route: 048
     Dates: start: 20090716
  4. RIVOTRIL [Concomitant]
     Active Substance: CLONAZEPAM
     Indication: PAIN IN EXTREMITY
     Dosage: ?????
     Route: 048
     Dates: start: 20090716
  5. GABAPEN [Concomitant]
     Active Substance: GABAPENTIN
     Indication: PAIN IN EXTREMITY
     Dosage: ?????
     Route: 048
     Dates: start: 20090716
  6. OXYCONTIN [Concomitant]
     Active Substance: OXYCODONE HYDROCHLORIDE
     Indication: PAIN IN EXTREMITY
     Dosage: ?????
     Route: 048
     Dates: start: 20090914
  7. TYKERB [Suspect]
     Active Substance: LAPATINIB DITOSYLATE
     Indication: BREAST CANCER
     Dosage: 1250 MG, QD
     Route: 048
     Dates: start: 20090716, end: 20090725
  8. GASTER [Concomitant]
     Active Substance: FAMOTIDINE
     Indication: ABDOMINAL PAIN UPPER
     Dosage: ?????
     Route: 048
     Dates: start: 20090716, end: 20091009
  9. NAUZELIN [Concomitant]
     Active Substance: DOMPERIDONE
     Indication: NAUSEA
     Dosage: ?????
     Route: 048
     Dates: start: 20090928, end: 20091009
  10. XELODA [Concomitant]
     Active Substance: CAPECITABINE
     Dosage: 900 MG,
     Route: 048
     Dates: start: 20090827, end: 20090909
  11. TRYPTANOL [Concomitant]
     Active Substance: AMITRIPTYLINE
     Indication: PAIN IN EXTREMITY
     Dosage: ?????
     Route: 048
     Dates: start: 20090716
  12. CHINESE MEDICINE [Concomitant]
     Active Substance: UNSPECIFIED INGREDIENT
     Indication: NAUSEA
     Dosage: ?????
     Route: 048
     Dates: start: 20090806, end: 20090812
  13. LOXONIN [Concomitant]
     Active Substance: LOXOPROFEN SODIUM
     Indication: PAIN IN EXTREMITY
     Dosage: ?????
     Route: 048
     Dates: start: 20090928, end: 20091009
  14. TYKERB [Suspect]
     Active Substance: LAPATINIB DITOSYLATE
     Indication: BREAST CANCER
     Dosage: 750 MG, QD
     Route: 048
     Dates: start: 20090806, end: 20091009
  15. VOLTAREN [Concomitant]
     Active Substance: DICLOFENAC SODIUM
     Indication: PAIN IN EXTREMITY
     Dosage: ?????
     Route: 048
     Dates: start: 20090716, end: 20091009
  16. NOVAMIN [Concomitant]
     Indication: NAUSEA
     Dosage: ?????
     Route: 048
     Dates: start: 20090806, end: 20090812
  17. PARIET [Concomitant]
     Active Substance: RABEPRAZOLE SODIUM
     Indication: DUODENAL ULCER
     Dosage: ?????
     Route: 048
     Dates: start: 20091112, end: 20091125
  18. TYKERB [Suspect]
     Active Substance: LAPATINIB DITOSYLATE
     Indication: BREAST CANCER
     Dosage: 1250 MG, QD
     Route: 048
     Dates: start: 20091112, end: 20091210
  19. XELODA [Concomitant]
     Active Substance: CAPECITABINE
     Indication: PRODUCT USED FOR UNKNOWN INDICATION
     Dosage: 1500 MG,
     Route: 048
     Dates: start: 20090716, end: 20090725
  20. SELBEX [Concomitant]
     Active Substance: TEPRENONE
     Indication: PRODUCT USED FOR UNKNOWN INDICATION
     Dosage: ?????
     Route: 048
     Dates: start: 20090928, end: 20091009

REACTIONS (3)
  - Diarrhoea [Recovering/Resolving]
  - Drug eruption [Recovered/Resolved]
  - Nausea [Recovered/Resolved]

NARRATIVE: CASE EVENT DATE: 20090717
